FAERS Safety Report 21456983 (Version 4)
Quarter: 2023Q1

REPORT INFORMATION
  Report Type: Spontaneous
  Country: US (occurrence: US)
  Receive Date: 20221014
  Receipt Date: 20230314
  Transmission Date: 20230417
  Serious: Yes (Other)
  Sender: FDA-Public Use
  Company Number: US-BRISTOL-MYERS SQUIBB COMPANY-2022-120192

PATIENT
  Age: 79 Year
  Sex: Female
  Weight: 63.95 kg

DRUGS (1)
  1. POMALYST [Suspect]
     Active Substance: POMALIDOMIDE
     Indication: Plasma cell myeloma
     Dosage: 2 MG, 21D ON 7D OFF
     Route: 048
     Dates: end: 202302

REACTIONS (4)
  - COVID-19 pneumonia [Recovering/Resolving]
  - Arthralgia [Unknown]
  - Fatigue [Unknown]
  - Upper respiratory tract infection [Recovering/Resolving]

NARRATIVE: CASE EVENT DATE: 20230201
